FAERS Safety Report 16187259 (Version 2)
Quarter: 2019Q2

REPORT INFORMATION
  Report Type: Report from Study
  Country: None (occurrence: AR)
  Receive Date: 20190411
  Receipt Date: 20190508
  Transmission Date: 20190711
  Serious: Yes (Other)
  Sender: FDA-Public Use
  Company Number: AR-ABBVIE-19K-007-2738181-00

PATIENT
  Sex: Female
  Weight: 73.4 kg

DRUGS (3)
  1. METFORMIN [Concomitant]
     Active Substance: METFORMIN HYDROCHLORIDE
  2. HUMIRA [Suspect]
     Active Substance: ADALIMUMAB
     Indication: HIDRADENITIS
     Route: 058
     Dates: start: 20190118, end: 2019
  3. METFORMIN [Concomitant]
     Active Substance: METFORMIN HYDROCHLORIDE
     Indication: WEIGHT DECREASED

REACTIONS (7)
  - Skin fissures [Unknown]
  - Uterine infection [Not Recovered/Not Resolved]
  - Infection [Unknown]
  - Dry skin [Unknown]
  - Furuncle [Unknown]
  - Acne [Not Recovered/Not Resolved]
  - Tooth extraction [Unknown]
